FAERS Safety Report 20951290 (Version 2)
Quarter: 2022Q2

REPORT INFORMATION
  Report Type: Report from Study
  Country: CN (occurrence: CN)
  Receive Date: 20220613
  Receipt Date: 20220620
  Transmission Date: 20220721
  Serious: Yes (Hospitalization)
  Sender: FDA-Public Use
  Company Number: CN-ASTELLAS-2022US020820

PATIENT
  Age: 64 Year
  Sex: Female
  Weight: 54.5 kg

DRUGS (10)
  1. ENFORTUMAB VEDOTIN [Suspect]
     Active Substance: ENFORTUMAB VEDOTIN
     Indication: Transitional cell carcinoma
     Dosage: 0.75 MG/KG, EVERY 4 WEEKS (ON D1, D8, D15)
     Route: 042
     Dates: start: 20210910, end: 20210920
  2. ENFORTUMAB VEDOTIN [Suspect]
     Active Substance: ENFORTUMAB VEDOTIN
     Dosage: 1.25 MG/KG, EVERY 4 WEEKS (ON D1, D8, D15)
     Route: 042
     Dates: start: 20210927, end: 20211025
  3. ENFORTUMAB VEDOTIN [Suspect]
     Active Substance: ENFORTUMAB VEDOTIN
     Dosage: 0.75 MG/KG, EVERY 4 WEEKS (D1, D8, D15)
     Route: 042
     Dates: start: 20211122, end: 20211206
  4. ENFORTUMAB VEDOTIN [Suspect]
     Active Substance: ENFORTUMAB VEDOTIN
     Dosage: 1 MG/KG, EVERY 4 WEEKS (ON D1, D8, D15)
     Route: 042
     Dates: start: 20211220
  5. ENFORTUMAB VEDOTIN [Suspect]
     Active Substance: ENFORTUMAB VEDOTIN
     Dosage: 1 MG/KG, EVERY 4 WEEKS (ON D1, D8, D15)
     Route: 042
  6. MEGESTROL ACETATE [Concomitant]
     Active Substance: MEGESTROL ACETATE
     Indication: Constipation
     Route: 048
     Dates: start: 202111
  7. UREA [Concomitant]
     Active Substance: UREA
     Indication: Drug eruption
     Dosage: UNK UNK, AS NEEDED (EXTERNAL USE)
     Route: 061
     Dates: start: 20220126
  8. OXYCODONE HYDROCHLORIDE [Concomitant]
     Active Substance: OXYCODONE HYDROCHLORIDE
     Indication: Cancer pain
     Dosage: 40 MG, ONCE DAILY (PROLONGED RELEASE)
     Route: 048
     Dates: start: 20211130
  9. HYDROCHLOROTHIAZIDE [Concomitant]
     Active Substance: HYDROCHLOROTHIAZIDE
     Indication: Oedema peripheral
     Route: 048
     Dates: start: 20220419
  10. SPIRONOLACTONE [Concomitant]
     Active Substance: SPIRONOLACTONE
     Indication: Oedema peripheral
     Route: 048
     Dates: start: 20220419

REACTIONS (1)
  - Hypokalaemia [Recovered/Resolved]

NARRATIVE: CASE EVENT DATE: 20220607
